FAERS Safety Report 4393722-2 (Version None)
Quarter: 2004Q3

REPORT INFORMATION
  Report Type: 
  Country: None (occurrence: None)
  Receive Date: 20040709
  Receipt Date: 20030813
  Transmission Date: 20050211
  Serious: Yes (Other)
  Sender: FDA-Public Use
  Company Number: DK-GLAXOSMITHKLINE-B0306866A

PATIENT

DRUGS (1)
  1. RETROVIR [Suspect]
     Route: 065

REACTIONS (4)
  - ANAEMIA [None]
  - BONE MARROW DEPRESSION [None]
  - THERAPEUTIC RESPONSE UNEXPECTED [None]
  - WHITE BLOOD CELL COUNT DECREASED [None]
